FAERS Safety Report 11520233 (Version 1)
Quarter: 2015Q3

REPORT INFORMATION
  Report Type: Spontaneous
  Country: US (occurrence: None)
  Receive Date: 20150917
  Receipt Date: 20150917
  Transmission Date: 20151125
  Serious: Yes (Life-Threatening)
  Sender: FDA-Public Use
  Company Number: None

PATIENT
  Age: 50 Year
  Sex: Female

DRUGS (13)
  1. ALENDRONATE [Concomitant]
     Active Substance: ALENDRONATE SODIUM
  2. K-CHLORIDE [Concomitant]
  3. SIMETHICONE (DIMETHICONE) [Concomitant]
     Active Substance: DIMETHICONE
  4. HARVONI [Suspect]
     Active Substance: LEDIPASVIR\SOFOSBUVIR
     Indication: HEPATITIS C
     Dosage: 90/400MG
     Route: 048
     Dates: start: 20150323
  5. MAGNESIUM [Concomitant]
     Active Substance: MAGNESIUM
  6. TRAMADOL. [Concomitant]
     Active Substance: TRAMADOL
  7. FUROSEMIDE. [Concomitant]
     Active Substance: FUROSEMIDE
  8. LACTULOSE. [Concomitant]
     Active Substance: LACTULOSE
  9. CITALOPRAM [Concomitant]
     Active Substance: CITALOPRAM HYDROBROMIDE
  10. TYLENOL EXTRA STRENGTH [Concomitant]
     Active Substance: ACETAMINOPHEN
  11. URSODIOL. [Concomitant]
     Active Substance: URSODIOL
  12. OXYCODONE [Concomitant]
     Active Substance: OXYCODONE
  13. PROMETHAZINE [Concomitant]
     Active Substance: PROMETHAZINE\PROMETHAZINE HYDROCHLORIDE

REACTIONS (4)
  - Cellulitis [None]
  - Thrombocytopenia [None]
  - Ammonia increased [None]
  - Fistula [None]

NARRATIVE: CASE EVENT DATE: 20150803
